FAERS Safety Report 4934128-4 (Version None)
Quarter: 2006Q1

REPORT INFORMATION
  Report Type: 
  Country: None (occurrence: None)
  Receive Date: 20060303
  Receipt Date: 20060223
  Transmission Date: 20060701
  Serious: Yes (Hospitalization, Other)
  Sender: FDA-Public Use
  Company Number: 2006010000

PATIENT
  Age: 52 Year
  Sex: Male
  Weight: 81.6475 kg

DRUGS (10)
  1. LIPITOR [Suspect]
     Indication: BLOOD CHOLESTEROL INCREASED
     Dosage: 80 MG (80 MG, 1 IN 1 D)
     Dates: start: 19920101
  2. LIPITOR [Suspect]
     Indication: CARDIOVASCULAR EVENT PROPHYLAXIS
     Dosage: 80 MG (80 MG, 1 IN 1 D)
     Dates: start: 19920101
  3. PLAVIX [Concomitant]
  4. ASPIRIN [Concomitant]
  5. LORAZEPAM [Concomitant]
  6. GABAPENTIN [Concomitant]
  7. ZOLOFT [Concomitant]
  8. ALL OTHER THERAPEUTIC PRODUCTS (ALL OTHER THERAPEUTIC PRODUCTS) [Concomitant]
  9. NEXIUM [Concomitant]
  10. TRAZODONE HCL [Concomitant]

REACTIONS (11)
  - BLOOD COUNT ABNORMAL [None]
  - CARDIAC PACEMAKER INSERTION [None]
  - CORONARY ARTERY OCCLUSION [None]
  - HEPATIC PAIN [None]
  - IMPLANTABLE DEFIBRILLATOR INSERTION [None]
  - INSOMNIA [None]
  - LIVER DISORDER [None]
  - PACEMAKER COMPLICATION [None]
  - PHARMACEUTICAL PRODUCT COMPLAINT [None]
  - PROCEDURAL PAIN [None]
  - STENT PLACEMENT [None]
